FAERS Safety Report 4933268-3 (Version None)
Quarter: 2006Q1

REPORT INFORMATION
  Report Type: 
  Country: None (occurrence: None)
  Receive Date: 20060306
  Receipt Date: 20051215
  Transmission Date: 20060701
  Serious: Yes (Other)
  Sender: FDA-Public Use
  Company Number: US-MERCK-0512USA02454

PATIENT
  Age: 47 Year
  Sex: Male
  Weight: 141 kg

DRUGS (1)
  1. VIOXX [Suspect]
     Route: 048

REACTIONS (4)
  - ACROCHORDON [None]
  - BASAL CELL CARCINOMA [None]
  - DYSPNOEA [None]
  - MYOCARDIAL INFARCTION [None]
